FAERS Safety Report 12368476 (Version 1)
Quarter: 2016Q2

REPORT INFORMATION
  Report Type: Not Available
  Country: CH (occurrence: CH)
  Receive Date: 20160513
  Receipt Date: 20160513
  Transmission Date: 20160815
  Serious: Yes (Hospitalization)
  Sender: FDA-Public Use
  Company Number: CH-PURDUE PHARMA-DEU-2016-0017974

PATIENT
  Age: 82 Year
  Sex: Female
  Weight: 53 kg

DRUGS (24)
  1. SYMBICORT [Concomitant]
     Active Substance: BUDESONIDE\FORMOTEROL FUMARATE DIHYDRATE
     Indication: CHRONIC OBSTRUCTIVE PULMONARY DISEASE
     Dosage: UNK
     Route: 055
  2. AMLODIPIN                          /00972401/ [Suspect]
     Active Substance: AMLODIPINE BESYLATE
     Indication: ESSENTIAL HYPERTENSION
     Dosage: 5 MG, DAILY
     Route: 048
     Dates: start: 20160419
  3. KLACID                             /00984601/ [Suspect]
     Active Substance: CLARITHROMYCIN
     Indication: CHRONIC OBSTRUCTIVE PULMONARY DISEASE
     Dosage: UNK
     Route: 042
     Dates: start: 20160118, end: 20160121
  4. CLEXANE [Suspect]
     Active Substance: ENOXAPARIN SODIUM
     Indication: PRODUCT USED FOR UNKNOWN INDICATION
     Dosage: 20 MG, DAILY
     Route: 058
     Dates: start: 20160117, end: 20160217
  5. SUPRADYN /01713001/ [Suspect]
     Active Substance: MINERALS\VITAMINS
     Indication: PRODUCT USED FOR UNKNOWN INDICATION
     Dosage: UNK
     Route: 048
     Dates: start: 20160123, end: 20160414
  6. MEFENAMIC-ACID [Suspect]
     Active Substance: MEFENAMIC ACID
     Dosage: 1 DF, UNK
     Route: 048
     Dates: start: 20160329, end: 20160329
  7. COVERSUM [Suspect]
     Active Substance: PERINDOPRIL
     Indication: ESSENTIAL HYPERTENSION
     Dosage: UNK
     Route: 048
     Dates: start: 20160129, end: 20160217
  8. CONDROSULF [Concomitant]
     Active Substance: CHONDROITIN SULFATE (CHICKEN)
     Dosage: UNK
     Route: 048
     Dates: start: 20160218, end: 20160414
  9. UNIFYL CONTINUS TABLETTEN RETARD [Suspect]
     Active Substance: THEOPHYLLINE ANHYDROUS
     Indication: CHRONIC OBSTRUCTIVE PULMONARY DISEASE
     Dosage: 200 MG, DAILY
     Route: 048
     Dates: start: 20160129, end: 20160414
  10. TORASEMIDE [Suspect]
     Active Substance: TORSEMIDE
     Indication: PRODUCT USED FOR UNKNOWN INDICATION
     Dosage: 5 MG, DAILY
     Route: 048
     Dates: start: 20160206
  11. TIMOPTIC [Concomitant]
     Active Substance: TIMOLOL MALEATE
     Dosage: UNK
     Route: 047
  12. LASIX [Suspect]
     Active Substance: FUROSEMIDE
     Indication: PRODUCT USED FOR UNKNOWN INDICATION
     Dosage: UNK
     Route: 042
     Dates: start: 20160117, end: 20160204
  13. LISINOPRIL. [Suspect]
     Active Substance: LISINOPRIL
     Dosage: 1 DF, DAILY
     Route: 048
     Dates: end: 20160407
  14. ACCURETIC [Suspect]
     Active Substance: HYDROCHLOROTHIAZIDE\QUINAPRIL HYDROCHLORIDE
     Indication: ESSENTIAL HYPERTENSION
     Dosage: 10/6.25 MG, DAILY
     Route: 048
     Dates: start: 20160407, end: 20160414
  15. MEFENAMIC-ACID [Suspect]
     Active Substance: MEFENAMIC ACID
     Indication: PRODUCT USED FOR UNKNOWN INDICATION
     Dosage: 1 DF, UNK
     Route: 048
     Dates: start: 20160414, end: 20160414
  16. LISINOPRIL. [Suspect]
     Active Substance: LISINOPRIL
     Indication: ESSENTIAL HYPERTENSION
     Dosage: UNK
     Route: 048
     Dates: start: 20160416, end: 20160419
  17. SIMVASTATIN. [Suspect]
     Active Substance: SIMVASTATIN
     Indication: DYSLIPIDAEMIA
     Dosage: 20 MG, DAILY
     Route: 048
  18. CEFTRIAXON [Suspect]
     Active Substance: CEFTRIAXONE
     Indication: CHRONIC OBSTRUCTIVE PULMONARY DISEASE
     Dosage: UNK
     Route: 042
     Dates: start: 20160118, end: 20160126
  19. SPIRIVA [Concomitant]
     Active Substance: TIOTROPIUM BROMIDE MONOHYDRATE
     Indication: CHRONIC OBSTRUCTIVE PULMONARY DISEASE
     Dosage: UNK
     Route: 055
  20. AMLODIPIN                          /00972401/ [Suspect]
     Active Substance: AMLODIPINE BESYLATE
     Dosage: 5 MG, DAILY
     Route: 048
     Dates: start: 20160218, end: 20160329
  21. CONDROSULF [Concomitant]
     Active Substance: CHONDROITIN SULFATE (CHICKEN)
     Dosage: UNK
     Route: 048
     Dates: end: 20160117
  22. ACCURETIC [Suspect]
     Active Substance: HYDROCHLOROTHIAZIDE\QUINAPRIL HYDROCHLORIDE
     Dosage: UNK
     Route: 048
     Dates: end: 20160117
  23. PANTOPRAZOL [Suspect]
     Active Substance: PANTOPRAZOLE SODIUM
     Indication: PRODUCT USED FOR UNKNOWN INDICATION
     Dosage: 40 MG, DAILY
     Route: 048
     Dates: start: 20160117, end: 20160414
  24. ASPIRIN CARDIO [Suspect]
     Active Substance: ASPIRIN
     Indication: PRODUCT USED FOR UNKNOWN INDICATION
     Dosage: 100 MG, DAILY
     Route: 048
     Dates: end: 20160414

REACTIONS (8)
  - Pancytopenia [Not Recovered/Not Resolved]
  - Leukopenia [Not Recovered/Not Resolved]
  - Aplastic anaemia [Not Recovered/Not Resolved]
  - Bone marrow failure [Not Recovered/Not Resolved]
  - Anaemia [Not Recovered/Not Resolved]
  - Thrombocytopenia [Not Recovered/Not Resolved]
  - Thrombocytopenic purpura [Not Recovered/Not Resolved]
  - Agranulocytosis [Not Recovered/Not Resolved]

NARRATIVE: CASE EVENT DATE: 20160121
